FAERS Safety Report 17463522 (Version 1)
Quarter: 2020Q1

REPORT INFORMATION
  Report Type: Spontaneous
  Country: IN (occurrence: IN)
  Receive Date: 20200226
  Receipt Date: 20200226
  Transmission Date: 20200409
  Serious: Yes (Death, Other)
  Sender: FDA-Public Use
  Company Number: IN-GLAXOSMITHKLINE-IN2020GSK031503

PATIENT
  Age: 70 Year
  Sex: Male

DRUGS (1)
  1. DICLOFENAC [Suspect]
     Active Substance: DICLOFENAC
     Indication: VIRAL INFECTION
     Dosage: UNK
     Route: 048

REACTIONS (21)
  - Multiple organ dysfunction syndrome [Fatal]
  - Rash macular [Unknown]
  - Eyelid oedema [Unknown]
  - Skin lesion [Unknown]
  - Rash [Unknown]
  - Eye disorder [Unknown]
  - Eye movement disorder [Unknown]
  - Toxic epidermal necrolysis [Fatal]
  - Conjunctival hyperaemia [Unknown]
  - Eye swelling [Unknown]
  - Uveal prolapse [Unknown]
  - Exophthalmos [Unknown]
  - Disease progression [Unknown]
  - Panophthalmitis [Fatal]
  - Hypopyon [Unknown]
  - Eye pain [Unknown]
  - Mouth ulceration [Unknown]
  - Skin ulcer [Unknown]
  - Corneal exfoliation [Unknown]
  - Blindness [Unknown]
  - Corneal perforation [Unknown]
